FAERS Safety Report 7228162-1 (Version None)
Quarter: 2011Q1

REPORT INFORMATION
  Report Type: 
  Country: None (occurrence: None)
  Receive Date: 20110107
  Receipt Date: 20110104
  Transmission Date: 20110831
  Serious: Yes (Hospitalization)
  Sender: FDA-Public Use
  Company Number: SP03301

PATIENT
  Age: 74 Year
  Sex: Female

DRUGS (1)
  1. MOVIPREP [Suspect]
     Dosage: ORAL
     Route: 048
     Dates: start: 20101121, end: 20101121

REACTIONS (5)
  - DISTURBANCE IN ATTENTION [None]
  - DIZZINESS [None]
  - VOMITING [None]
  - HEADACHE [None]
  - DISORIENTATION [None]
